FAERS Safety Report 9443324 (Version 1)
Quarter: 2013Q3

REPORT INFORMATION
  Report Type: Spontaneous
  Country: US (occurrence: US)
  Receive Date: 20130806
  Receipt Date: 20130806
  Transmission Date: 20140515
  Serious: Yes (Other)
  Sender: FDA-Public Use
  Company Number: US-GLAXOSMITHKLINE-A1036383A

PATIENT
  Age: 62 Year
  Sex: Female

DRUGS (3)
  1. ZOFRAN [Suspect]
     Indication: PRODUCT USED FOR UNKNOWN INDICATION
     Route: 065
  2. ZOSYN [Suspect]
     Indication: PRODUCT USED FOR UNKNOWN INDICATION
     Route: 065
  3. PHENOBARBITAL [Suspect]
     Indication: PRODUCT USED FOR UNKNOWN INDICATION
     Dosage: 60MG FOUR TIMES PER DAY
     Route: 065

REACTIONS (8)
  - Respiratory failure [Unknown]
  - Malaise [Unknown]
  - Anxiety [Unknown]
  - Muscle spasms [Unknown]
  - Local swelling [Unknown]
  - Oedema [Unknown]
  - Vision blurred [Unknown]
  - Drug interaction [Unknown]
